FAERS Safety Report 23167767 (Version 1)
Quarter: 2023Q4

REPORT INFORMATION
  Report Type: Spontaneous
  Country: US (occurrence: US)
  Receive Date: 20231109
  Receipt Date: 20231109
  Transmission Date: 20240110
  Serious: Yes (Hospitalization, Other)
  Sender: FDA-Public Use
  Company Number: US-PAIPHARMA-2023-US-037710

PATIENT
  Age: 22 Year
  Sex: 0

DRUGS (5)
  1. AMANTADINE [Suspect]
     Active Substance: AMANTADINE
     Indication: Post-traumatic headache
     Dosage: 100 MG TWICE DAILY
  2. GABAPENTIN [Suspect]
     Active Substance: GABAPENTIN
     Indication: Post-traumatic headache
     Dosage: 300 MG 3 TIMES DAILY
  3. DULOXETINE [Suspect]
     Active Substance: DULOXETINE
     Indication: Post-traumatic headache
     Dosage: 40 MG TWICE DAILY
  4. BUPROPION [Suspect]
     Active Substance: BUPROPION
     Indication: Affective disorder
     Dosage: 450 MG DAILY
  5. BOTULINUM TOXIN NOS [Concomitant]
     Active Substance: BOTULINUM TOXIN NOS

REACTIONS (1)
  - Serotonin syndrome [Recovered/Resolved]
